FAERS Safety Report 20523615 (Version 1)
Quarter: 2022Q1

REPORT INFORMATION
  Report Type: Report from Study
  Country: IT (occurrence: IT)
  Receive Date: 20220228
  Receipt Date: 20220228
  Transmission Date: 20220423
  Serious: Yes (Death, Other)
  Sender: FDA-Public Use
  Company Number: IT-GRUNENTHAL-2022-101627

PATIENT
  Sex: Male

DRUGS (1)
  1. TRAMADOL HYDROCHLORIDE [Suspect]
     Active Substance: TRAMADOL HYDROCHLORIDE
     Indication: Pain
     Dosage: UNK
     Route: 065

REACTIONS (6)
  - Death [Fatal]
  - Drug abuse [Fatal]
  - Pulmonary oedema [Fatal]
  - Oedema [Fatal]
  - Myocardial fibrosis [Fatal]
  - Overdose [Fatal]
